FAERS Safety Report 7369369-2 (Version None)
Quarter: 2011Q1

REPORT INFORMATION
  Report Type: 
  Country: None (occurrence: None)
  Receive Date: 20110314
  Receipt Date: 20110216
  Transmission Date: 20110831
  Serious: Yes (Hospitalization)
  Sender: FDA-Public Use
  Company Number: OTH-PAT-2011001

PATIENT
  Age: 46 Year
  Sex: Female

DRUGS (1)
  1. CYSTADANE [Suspect]
     Indication: HOMOCYSTINURIA
     Dosage: 12 G EVERY DAY
     Dates: start: 20080724

REACTIONS (1)
  - RENAL TRANSPLANT [None]
